FAERS Safety Report 9161303 (Version 2)
Quarter: 2013Q2

REPORT INFORMATION
  Report Type: Spontaneous
  Country: US (occurrence: US)
  Receive Date: 20130313
  Receipt Date: 20130501
  Transmission Date: 20140414
  Serious: No
  Sender: FDA-Public Use
  Company Number: US-009507513-1303USA006241

PATIENT
  Age: 45 Year
  Sex: Male
  Weight: 84.81 kg

DRUGS (6)
  1. CLARITIN [Suspect]
     Indication: COLD URTICARIA
     Dosage: 10 MG, QD
     Route: 048
     Dates: start: 1997
  2. CLARITIN [Suspect]
     Indication: URTICARIA
  3. CLARITIN [Suspect]
     Indication: RASH
  4. CLARITIN [Suspect]
     Indication: MEDICAL OBSERVATION
  5. GLYBURIDE [Concomitant]
     Indication: DIABETES MELLITUS
     Dosage: UNK, UNKNOWN
  6. METFORMIN [Concomitant]
     Indication: DIABETES MELLITUS
     Dosage: UNK, UNKNOWN

REACTIONS (2)
  - Drug ineffective for unapproved indication [Unknown]
  - Inappropriate schedule of drug administration [Unknown]
